FAERS Safety Report 24987059 (Version 2)
Quarter: 2025Q1

REPORT INFORMATION
  Report Type: Spontaneous
  Country: FR (occurrence: FR)
  Receive Date: 20250219
  Receipt Date: 20250219
  Transmission Date: 20250409
  Serious: Yes (Life-Threatening, Hospitalization)
  Sender: PFIZER
  Company Number: FR-MLMSERVICE-20250205-PI395636-00286-1

PATIENT
  Age: 72 Year
  Sex: Male

DRUGS (7)
  1. PAXLOVID [Interacting]
     Active Substance: NIRMATRELVIR\RITONAVIR
     Indication: COVID-19 treatment
  2. TACROLIMUS [Interacting]
     Active Substance: TACROLIMUS
     Indication: Immunosuppressant drug therapy
     Dosage: 1.5 MG, 2X/DAY, IMMEDIATE-RELEASE; TARGET TROUGH BLOOD CONCENTRATION: 5.0-6.0 MG/L
  3. TACROLIMUS [Interacting]
     Active Substance: TACROLIMUS
     Dosage: 0.5 MG, 2X/DAY ON DAY 15
  4. TACROLIMUS [Interacting]
     Active Substance: TACROLIMUS
     Dosage: 1 MG, 2X/DAY ON DAY 17
  5. TACROLIMUS [Interacting]
     Active Substance: TACROLIMUS
     Dosage: 1.5 MG, 2X/DAY ON DAY 22
  6. VEKLURY [Interacting]
     Active Substance: REMDESIVIR
     Indication: COVID-19
  7. MYCOPHENOLATE MOFETIL [Concomitant]
     Active Substance: MYCOPHENOLATE MOFETIL
     Indication: Immunosuppressant drug therapy
     Dosage: 500 MG, 2X/DAY TARGET TROUGH PLASMA CONCENTRATION: 2.5 MG/L

REACTIONS (8)
  - Drug interaction [Recovering/Resolving]
  - Overdose [Recovering/Resolving]
  - Renal impairment [Recovered/Resolved]
  - Hypertensive crisis [Unknown]
  - Microangiopathy [Unknown]
  - Thrombotic microangiopathy [Unknown]
  - Red blood cell count decreased [Recovered/Resolved]
  - Haematocrit decreased [Recovered/Resolved]
